FAERS Safety Report 5040517-2 (Version None)
Quarter: 2006Q2

REPORT INFORMATION
  Report Type: 
  Country: None (occurrence: None)
  Receive Date: 20060630
  Receipt Date: 20060622
  Transmission Date: 20061013
  Serious: Yes (Hospitalization)
  Sender: FDA-Public Use
  Company Number: CH-ABBOTT-06P-151-0336727-00

PATIENT
  Sex: Female

DRUGS (1)
  1. REDUCTIL [Suspect]
     Indication: OVERWEIGHT
     Route: 048

REACTIONS (3)
  - GUILLAIN-BARRE SYNDROME [None]
  - PARAESTHESIA [None]
  - WALKING DISABILITY [None]
